FAERS Safety Report 18463861 (Version 2)
Quarter: 2020Q4

REPORT INFORMATION
  Report Type: Report from Study
  Country: CA (occurrence: CA)
  Receive Date: 20201104
  Receipt Date: 20201125
  Transmission Date: 20210114
  Serious: Yes (Hospitalization, Other)
  Sender: FDA-Public Use
  Company Number: CA-JNJFOC-20201015401

PATIENT
  Age: 40 Year
  Sex: Male
  Weight: 80.9 kg

DRUGS (5)
  1. PREDNISONE. [Concomitant]
     Active Substance: PREDNISONE
     Indication: PRODUCT USED FOR UNKNOWN INDICATION
     Route: 065
     Dates: end: 202009
  2. REMICADE [Suspect]
     Active Substance: INFLIXIMAB
     Route: 042
     Dates: start: 20200916
  3. REMICADE [Suspect]
     Active Substance: INFLIXIMAB
     Dosage: PATIENT ADMINISTERED 4TH INFUSION OF 840 MG ON 10 OCT 2020
     Route: 042
     Dates: start: 20201010
  4. REMICADE [Suspect]
     Active Substance: INFLIXIMAB
     Route: 042
     Dates: start: 202010
  5. REMICADE [Suspect]
     Active Substance: INFLIXIMAB
     Indication: COLITIS ULCERATIVE
     Route: 042
     Dates: start: 20200522

REACTIONS (6)
  - Incorrect dose administered [Unknown]
  - Colitis ulcerative [Not Recovered/Not Resolved]
  - Clostridium difficile infection [Recovered/Resolved]
  - Cytomegalovirus colitis [Unknown]
  - Off label use [Unknown]
  - Product use issue [Unknown]

NARRATIVE: CASE EVENT DATE: 2020
